FAERS Safety Report 5973149-X (Version None)
Quarter: 2008Q4

REPORT INFORMATION
  Report Type: 
  Country: None (occurrence: None)
  Receive Date: 20081201
  Receipt Date: 20081125
  Transmission Date: 20090506
  Serious: Yes (Other)
  Sender: FDA-Public Use
  Company Number: JP-ASTRAZENECA-2008SE04631

PATIENT
  Age: 61 Year
  Sex: Female

DRUGS (12)
  1. BLOPRESS [Suspect]
     Indication: CARDIAC FAILURE CHRONIC
     Route: 048
     Dates: start: 20070508, end: 20070712
  2. ALDACTONE [Suspect]
     Indication: CARDIAC FAILURE CHRONIC
     Route: 048
     Dates: start: 20070508, end: 20070712
  3. ASPIRIN [Concomitant]
     Indication: CARDIAC FAILURE CHRONIC
     Route: 048
     Dates: start: 20070508
  4. MILLISTAPE [Concomitant]
     Indication: CARDIAC FAILURE CHRONIC
     Route: 062
     Dates: start: 20070508
  5. LASIX [Concomitant]
     Indication: CARDIAC FAILURE CHRONIC
     Route: 048
     Dates: start: 20070511
  6. ARTIST [Concomitant]
     Indication: CARDIAC FAILURE CHRONIC
     Route: 048
     Dates: start: 20070518, end: 20070521
  7. ARTIST [Concomitant]
     Route: 048
     Dates: start: 20070522, end: 20071014
  8. ARTIST [Concomitant]
     Route: 048
     Dates: start: 20071015
  9. GRAMALIL [Concomitant]
     Indication: INSOMNIA
     Route: 048
     Dates: start: 20070508, end: 20070531
  10. TRIAZOLAM [Concomitant]
     Indication: INSOMNIA
     Route: 048
     Dates: start: 20070508, end: 20070531
  11. EPADEL [Concomitant]
     Indication: HYPERLIPIDAEMIA
     Route: 048
     Dates: start: 20070517, end: 20080807
  12. ITOROL [Concomitant]
     Indication: ANGINA PECTORIS
     Route: 048
     Dates: start: 20070521, end: 20080821

REACTIONS (3)
  - HAEMOGLOBIN DECREASED [None]
  - RED BLOOD CELL COUNT DECREASED [None]
  - RENAL IMPAIRMENT [None]
